FAERS Safety Report 7298242-3 (Version None)
Quarter: 2011Q1

REPORT INFORMATION
  Report Type: 
  Country: None (occurrence: None)
  Receive Date: 20110208
  Receipt Date: 20110131
  Transmission Date: 20110831
  Serious: Yes (Hospitalization, Other)
  Sender: FDA-Public Use
  Company Number: 20109518

PATIENT
  Age: 16 Year
  Sex: Male

DRUGS (1)
  1. LIORESAL [Suspect]
     Indication: MUSCLE SPASTICITY
     Dosage: SEE B5, MCG, DAILY, INTRATHECAL
     Route: 039

REACTIONS (11)
  - CLONUS [None]
  - NAUSEA [None]
  - DEVICE OCCLUSION [None]
  - HYPERTONIA [None]
  - TREMOR [None]
  - WITHDRAWAL SYNDROME [None]
  - WOUND SECRETION [None]
  - VOMITING [None]
  - PRURITUS [None]
  - MUSCLE SPASMS [None]
  - SECRETION DISCHARGE [None]
